FAERS Safety Report 4446823-4 (Version None)
Quarter: 2004Q3

REPORT INFORMATION
  Report Type: 
  Country: None (occurrence: None)
  Receive Date: 20040802
  Receipt Date: 20040624
  Transmission Date: 20050211
  Serious: No
  Sender: FDA-Public Use
  Company Number: 2004-117727-NL

PATIENT
  Age: 32 Year
  Weight: 88.6 kg

DRUGS (3)
  1. NUVARING [Suspect]
     Indication: CONTRACEPTION
     Dosage: DF DAILY VAGINAL
     Route: 067
  2. TRAMADOL HCL [Concomitant]
  3. MULTI-VITAMINS [Concomitant]

REACTIONS (3)
  - ABDOMINAL DISTENSION [None]
  - DYSMENORRHOEA [None]
  - METRORRHAGIA [None]
